FAERS Safety Report 7462041-X (Version None)
Quarter: 2011Q2

REPORT INFORMATION
  Report Type: 
  Country: None (occurrence: None)
  Receive Date: 20110506
  Receipt Date: 20110203
  Transmission Date: 20111010
  Serious: Yes (Hospitalization, Other)
  Sender: FDA-Public Use
  Company Number: US-BAYER-201037704NA

PATIENT
  Age: 41 Year
  Sex: Female
  Weight: 68 kg

DRUGS (7)
  1. DROSPIRENONE AND ETHINYL ESTRADIOL [Suspect]
     Indication: ACNE
  2. YASMIN [Suspect]
     Indication: ACNE
  3. YASMIN [Suspect]
     Indication: PREMENSTRUAL SYNDROME
     Dosage: UNK
     Dates: start: 20000101, end: 20100101
  4. YAZ [Suspect]
     Indication: ACNE
  5. DROSPIRENONE AND ETHINYL ESTRADIOL [Suspect]
     Indication: PREMENSTRUAL SYNDROME
     Dosage: UNK
     Dates: start: 20000101, end: 20100101
  6. YAZ [Suspect]
     Indication: PREMENSTRUAL SYNDROME
  7. DICYCLOMINE [Concomitant]
     Dosage: DAILY DOSE 20 MG

REACTIONS (7)
  - GALLBLADDER DISORDER [None]
  - VOMITING [None]
  - ABDOMINAL PAIN UPPER [None]
  - GASTROOESOPHAGEAL REFLUX DISEASE [None]
  - PEPTIC ULCER [None]
  - DYSPEPSIA [None]
  - HELICOBACTER GASTRITIS [None]
